FAERS Safety Report 14400024 (Version 3)
Quarter: 2018Q1

REPORT INFORMATION
  Report Type: Spontaneous
  Country: PR (occurrence: US)
  Receive Date: 20180117
  Receipt Date: 20180222
  Transmission Date: 20180509
  Serious: Yes (Hospitalization)
  Sender: FDA-Public Use
  Company Number: PR-JNJFOC-20180100069

PATIENT
  Age: 53 Year
  Sex: Male
  Weight: 77.57 kg

DRUGS (1)
  1. XARELTO [Suspect]
     Active Substance: RIVAROXABAN
     Indication: DEEP VEIN THROMBOSIS
     Route: 048
     Dates: start: 20160209, end: 20160630

REACTIONS (5)
  - Shock haemorrhagic [Recovered/Resolved]
  - Oesophageal varices haemorrhage [Unknown]
  - Rectal haemorrhage [Recovered/Resolved]
  - Acute kidney injury [Recovered/Resolved]
  - Melaena [Unknown]

NARRATIVE: CASE EVENT DATE: 20160224
